FAERS Safety Report 25064010 (Version 1)
Quarter: 2025Q1

REPORT INFORMATION
  Report Type: Spontaneous
  Country: RO (occurrence: RO)
  Receive Date: 20250311
  Receipt Date: 20250311
  Transmission Date: 20250409
  Serious: Yes (Life-Threatening, Hospitalization)
  Sender: ACCORD
  Company Number: RO-MLMSERVICE-20250225-PI420981-00190-1

PATIENT
  Age: 26 Year
  Sex: Female

DRUGS (3)
  1. SERTRALINE [Suspect]
     Active Substance: SERTRALINE HYDROCHLORIDE
     Indication: Depression
  2. LAMOTRIGINE [Suspect]
     Active Substance: LAMOTRIGINE
     Indication: Depression
  3. CLONAZEPAM [Concomitant]
     Active Substance: CLONAZEPAM
     Indication: Depression

REACTIONS (12)
  - Toxic epidermal necrolysis [Recovered/Resolved]
  - Conjunctivitis [Recovered/Resolved]
  - Visual acuity reduced [Recovered/Resolved]
  - Stomatitis [Recovered/Resolved]
  - Glossitis [Recovered/Resolved]
  - Vulvovaginitis [Recovered/Resolved]
  - Leukopenia [Recovered/Resolved]
  - Anaemia [Unknown]
  - Hyperglycaemia [Unknown]
  - Hypoproteinaemia [Unknown]
  - Hypoalbuminaemia [Unknown]
  - Thrombocytopenia [Unknown]
